FAERS Safety Report 9032448 (Version 1)
Quarter: 2013Q1

REPORT INFORMATION
  Report Type: Spontaneous
  Country: US (occurrence: US)
  Receive Date: 20130125
  Receipt Date: 20130125
  Transmission Date: 20140127
  Serious: Yes (Hospitalization)
  Sender: FDA-Public Use
  Company Number: US-GLAXOSMITHKLINE-A1009367A

PATIENT
  Age: 67 Year
  Sex: Male
  Weight: 83.2 kg

DRUGS (3)
  1. AVANDIA [Suspect]
     Indication: DIABETES MELLITUS
     Dosage: 8MG PER DAY
  2. LIPITOR [Concomitant]
  3. LANTUS [Concomitant]

REACTIONS (3)
  - Cerebrovascular accident [Unknown]
  - Nervous system disorder [Unknown]
  - Memory impairment [Unknown]
